FAERS Safety Report 8619327-2 (Version None)
Quarter: 2012Q3

REPORT INFORMATION
  Report Type: 
  Country: None (occurrence: None)
  Receive Date: 20120824
  Receipt Date: 20120817
  Transmission Date: 20120928
  Serious: Yes (Other)
  Sender: FDA-Public Use
  Company Number: US-PFIZER INC-2012158060

PATIENT
  Age: 60 Year
  Sex: Female

DRUGS (13)
  1. CELEBREX [Suspect]
     Dosage: 200 MG, 1X/DAY
  2. PRISTIQ [Suspect]
     Dosage: UNK
  3. NITROGLYCERIN [Concomitant]
     Dosage: 0.4 MG, EVERY 8 HRS
     Route: 060
  4. ZETIA [Concomitant]
     Dosage: 10 MG, 1X/DAY
  5. CARVEDILOL [Concomitant]
     Dosage: 3.125 MG, 2X/DAY
  6. LYRICA [Suspect]
     Dosage: 50 MG, 1X/DAY
  7. JANUVIA [Concomitant]
     Dosage: 100 MG, 1X/DAY
  8. SIMVASTATIN [Concomitant]
     Dosage: 20 MG, 1X/DAY
  9. VITAMIN D [Concomitant]
     Dosage: 2000 UNIT 1X/DAY
  10. PROTONIX [Suspect]
     Dosage: 40 MG, 2X/DAY
  11. ACETYLSALICYLIC ACID [Concomitant]
     Dosage: 81 MG, 1X/DAY
  12. ENALAPRIL MALEATE [Concomitant]
     Dosage: 10 MG, 2X/DAY
  13. PLAVIX [Concomitant]
     Dosage: 75 MG, 1X/DAY

REACTIONS (1)
  - CEREBROVASCULAR ACCIDENT [None]
